FAERS Safety Report 24044947 (Version 2)
Quarter: 2024Q3

REPORT INFORMATION
  Report Type: Spontaneous
  Country: US (occurrence: US)
  Receive Date: 20240703
  Receipt Date: 20240723
  Transmission Date: 20241017
  Serious: Yes (Death, Life-Threatening, Hospitalization)
  Sender: ASPIRO PHARMA
  Company Number: US-ASPIRO-ASP2024US02046

PATIENT
  Age: 69 Year
  Sex: Female
  Weight: 170 kg

DRUGS (10)
  1. VANCOMYCIN [Suspect]
     Active Substance: VANCOMYCIN
     Indication: Antibiotic therapy
     Dosage: 2000 MILLIGRAM (IN TOTAL)
     Route: 042
  2. VANCOMYCIN [Suspect]
     Active Substance: VANCOMYCIN
     Indication: Sepsis
     Dosage: 1500 MILLIGRAM, QD
     Route: 042
  3. VANCOMYCIN [Suspect]
     Active Substance: VANCOMYCIN
     Dosage: DOSES WERE ADJUSTED AS PER THE BAYESIAN DOSING SOFTWARE
     Route: 065
  4. BEBTELOVIMAB [Concomitant]
     Active Substance: BEBTELOVIMAB
     Indication: COVID-19
     Dosage: UNK
     Route: 065
  5. AZTREONAM [Concomitant]
     Active Substance: AZTREONAM
     Indication: Antibiotic therapy
     Dosage: UNK
     Route: 042
  6. AZTREONAM [Concomitant]
     Active Substance: AZTREONAM
     Indication: Pseudomonas infection
  7. METRONIDAZOLE [Concomitant]
     Active Substance: METRONIDAZOLE
     Indication: Antibiotic therapy
     Dosage: UNK
     Route: 042
  8. METRONIDAZOLE [Concomitant]
     Active Substance: METRONIDAZOLE
     Indication: Pseudomonas infection
  9. DOXYCYCLINE [Concomitant]
     Active Substance: DOXYCYCLINE\DOXYCYCLINE HYCLATE
     Indication: Antibiotic therapy
     Dosage: UNK
     Route: 042
  10. DOXYCYCLINE [Concomitant]
     Active Substance: DOXYCYCLINE\DOXYCYCLINE HYCLATE
     Indication: Pseudomonas infection

REACTIONS (5)
  - Sepsis [Fatal]
  - False positive investigation result [Fatal]
  - Laboratory test interference [Fatal]
  - Drug level above therapeutic [Fatal]
  - Treatment failure [Fatal]
